FAERS Safety Report 11394763 (Version 3)
Quarter: 2015Q3

REPORT INFORMATION
  Report Type: Report from Study
  Country: DE (occurrence: DE)
  Receive Date: 20150819
  Receipt Date: 20150921
  Transmission Date: 20151125
  Serious: No
  Sender: FDA-Public Use
  Company Number: DE-UCBSA-2015025699

PATIENT
  Sex: Female
  Weight: 64 kg

DRUGS (4)
  1. DOLOMIN [Concomitant]
     Indication: HEADACHE
     Dosage: 200 MG, AS NEEDED (PRN)
     Dates: start: 1999
  2. LACOSAMIDE EP [Suspect]
     Active Substance: LACOSAMIDE
     Indication: EPILEPSY
     Dosage: 200 OR 400 MG, 2X/DAY (BID)
     Route: 048
     Dates: start: 20120831
  3. BRONCHICUM [Concomitant]
     Indication: COUGH
     Dosage: UNK DROPS, 3X/DAY (TID)
     Dates: start: 2012, end: 2012
  4. IBUPROFEN. [Concomitant]
     Active Substance: IBUPROFEN
     Indication: INFLUENZA
     Dosage: 400 MG, ONCE DAILY (QD)
     Dates: start: 20121218, end: 20121218

REACTIONS (1)
  - Syncope [Recovered/Resolved]

NARRATIVE: CASE EVENT DATE: 20121201
